FAERS Safety Report 7325961-2 (Version None)
Quarter: 2011Q1

REPORT INFORMATION
  Report Type: 
  Country: None (occurrence: None)
  Receive Date: 20110302
  Receipt Date: 20110221
  Transmission Date: 20110831
  Serious: Yes (Hospitalization)
  Sender: FDA-Public Use
  Company Number: US-B.I. PHARMACEUTICALS,INC./RIDGEFIELD-2011-BP-01638BP

PATIENT
  Age: 70 Year
  Sex: Male

DRUGS (8)
  1. PRADAXA [Suspect]
     Indication: ATRIAL FIBRILLATION
     Dosage: 300 MG
     Dates: start: 20110110, end: 20110120
  2. FLOMAX [Concomitant]
     Dosage: 0.4 MG
  3. ASA [Concomitant]
     Dosage: 81 MG
  4. DEMEDEX [Concomitant]
     Dosage: 10 MG
  5. ADVAIR DISKUS 100/50 [Concomitant]
  6. ALLOPURINOL [Concomitant]
  7. TEKTURNA [Concomitant]
  8. BYSTOLIC [Concomitant]
     Dosage: 10 MG

REACTIONS (14)
  - PROTHROMBIN TIME PROLONGED [None]
  - ACTIVATED PARTIAL THROMBOPLASTIN TIME PROLONGED [None]
  - BLOOD CREATINE [None]
  - GLOMERULAR FILTRATION RATE [None]
  - COLONIC POLYP [None]
  - MELAENA [None]
  - OESOPHAGEAL ULCER [None]
  - GASTRIC HAEMORRHAGE [None]
  - HAEMOPTYSIS [None]
  - GASTRITIS [None]
  - LARGE INTESTINAL HAEMORRHAGE [None]
  - HAEMORRHAGE [None]
  - ARTERIOVENOUS MALFORMATION [None]
  - INTERNATIONAL NORMALISED RATIO [None]
